FAERS Safety Report 6337541-6 (Version None)
Quarter: 2009Q3

REPORT INFORMATION
  Report Type: 
  Country: None (occurrence: None)
  Receive Date: 20090901
  Receipt Date: 20090901
  Transmission Date: 20100115
  Serious: Yes (Other)
  Sender: FDA-Public Use
  Company Number: None

PATIENT
  Age: 72 Year
  Sex: Male
  Weight: 74.8435 kg

DRUGS (10)
  1. LIPITOR [Suspect]
     Indication: BLOOD CHOLESTEROL
     Dosage: TABLET 40 MG   80MG 1X DAY ORAL 047
     Route: 048
     Dates: start: 20040206, end: 20090601
  2. LIPITOR [Suspect]
     Indication: BLOOD TRIGLYCERIDES
     Dosage: TABLET 40 MG   80MG 1X DAY ORAL 047
     Route: 048
     Dates: start: 20040206, end: 20090601
  3. LIPITOR [Suspect]
     Indication: BLOOD CHOLESTEROL
     Dosage: TABLET 40 MG   80MG 1X DAY ORAL 047
     Route: 048
     Dates: start: 20031201
  4. LIPITOR [Suspect]
     Indication: BLOOD TRIGLYCERIDES
     Dosage: TABLET 40 MG   80MG 1X DAY ORAL 047
     Route: 048
     Dates: start: 20031201
  5. AMARYL [Concomitant]
  6. LISINOPRIL [Concomitant]
  7. INSULIN LEVEMIR [Concomitant]
  8. ACTOS [Concomitant]
  9. METFORMIN HCL [Concomitant]
  10. ALLOPURINOL [Concomitant]

REACTIONS (11)
  - ASTHENIA [None]
  - DRUG HYPERSENSITIVITY [None]
  - FATIGUE [None]
  - GAIT DISTURBANCE [None]
  - INSOMNIA [None]
  - JOINT STIFFNESS [None]
  - MUSCULAR WEAKNESS [None]
  - MUSCULOSKELETAL STIFFNESS [None]
  - PAIN [None]
  - PAIN IN EXTREMITY [None]
  - RASH [None]
